FAERS Safety Report 11760144 (Version 1)
Quarter: 2015Q4

REPORT INFORMATION
  Report Type: Spontaneous
  Country: US (occurrence: US)
  Receive Date: 20151120
  Receipt Date: 20151120
  Transmission Date: 20160304
  Serious: No
  Sender: FDA-Public Use
  Company Number: US-GALENA BIOPHARMA-1044476

PATIENT
  Age: 56 Year
  Sex: Female
  Weight: 81.82 kg

DRUGS (4)
  1. PERCOCET [Concomitant]
     Active Substance: ACETAMINOPHEN\OXYCODONE HYDROCHLORIDE
     Route: 048
  2. SOMA [Concomitant]
     Active Substance: CARISOPRODOL
     Route: 048
  3. ABSTRAL [Suspect]
     Active Substance: FENTANYL CITRATE
     Indication: OFF LABEL USE
     Route: 060
     Dates: start: 20140414
  4. LISINOPRIL-HYDROCHLOROTHIAZIDE [Concomitant]
     Active Substance: HYDROCHLOROTHIAZIDE\LISINOPRIL
     Route: 048

REACTIONS (3)
  - Off label use [Unknown]
  - Product physical issue [Unknown]
  - Drug ineffective [Unknown]

NARRATIVE: CASE EVENT DATE: 20140414
